FAERS Safety Report 4367332-7 (Version None)
Quarter: 2004Q2

REPORT INFORMATION
  Report Type: 
  Country: None (occurrence: None)
  Receive Date: 20040527
  Receipt Date: 20040512
  Transmission Date: 20050107
  Serious: Yes (Other)
  Sender: FDA-Public Use
  Company Number: FLUV00304000393

PATIENT
  Age: 68 Year
  Sex: Female

DRUGS (2)
  1. LUVOX [Suspect]
     Indication: BIPOLAR I DISORDER
     Dosage: 50 MG DAILY PO, 75 MG DAILY PO
     Route: 048
     Dates: start: 20040101, end: 20040107
  2. LITHIUM CARBONATE [Suspect]
     Indication: ILL-DEFINED DISORDER
     Dosage: 300 MG DAILY PO
     Route: 048
     Dates: start: 20040101, end: 20040112

REACTIONS (4)
  - CEREBRAL INFARCTION [None]
  - DISEASE PROGRESSION [None]
  - SEROTONIN SYNDROME [None]
  - SUBDURAL HAEMATOMA [None]
